FAERS Safety Report 12596838 (Version 1)
Quarter: 2016Q3

REPORT INFORMATION
  Report Type: Spontaneous
  Country: IN (occurrence: IN)
  Receive Date: 20160726
  Receipt Date: 20160726
  Transmission Date: 20161109
  Serious: Yes (Other)
  Sender: FDA-Public Use
  Company Number: IN-FRESENIUS KABI-FK201604785

PATIENT
  Age: 44 Year
  Sex: Female

DRUGS (2)
  1. LIDOCAINE / ADRENALINE (MANUFACTURER UNKNOWN) [Suspect]
     Active Substance: EPINEPHRINE\LIDOCAINE
     Indication: LOCAL ANAESTHESIA
     Route: 050
     Dates: start: 20141003, end: 20141003
  2. LIDOCAINE / ADRENALINE (MANUFACTURER UNKNOWN) [Suspect]
     Active Substance: EPINEPHRINE\LIDOCAINE
     Route: 050
     Dates: start: 20141003, end: 20141003

REACTIONS (2)
  - Mucosal necrosis [Recovering/Resolving]
  - Post-traumatic neuralgia [Unknown]

NARRATIVE: CASE EVENT DATE: 20141028
